FAERS Safety Report 16806784 (Version 3)
Quarter: 2019Q4

REPORT INFORMATION
  Report Type: Report from Study
  Country: US (occurrence: US)
  Receive Date: 20190913
  Receipt Date: 20191219
  Transmission Date: 20200122
  Serious: No
  Sender: FDA-Public Use
  Company Number: PHEH2019US037667

PATIENT
  Age: 65 Year
  Sex: Female

DRUGS (1)
  1. COSENTYX [Suspect]
     Active Substance: SECUKINUMAB
     Indication: PSORIASIS
     Dosage: 300 MG, INJECT 300 MG (2 PENS) SUBCUTANEOUSLY AT WEEK 4, THEN 300 MG (2 PENS) EVERY 4 WEEKS
     Route: 058
     Dates: start: 201903

REACTIONS (4)
  - Injection site rash [Unknown]
  - Rash pruritic [Unknown]
  - Rash [Unknown]
  - Urticaria [Unknown]

NARRATIVE: CASE EVENT DATE: 201910
